FAERS Safety Report 6452828-4 (Version None)
Quarter: 2009Q4

REPORT INFORMATION
  Report Type: 
  Country: None (occurrence: None)
  Receive Date: 20091123
  Receipt Date: 20091123
  Transmission Date: 20100525
  Serious: Yes (Other)
  Sender: FDA-Public Use
  Company Number: None

PATIENT
  Sex: Female

DRUGS (1)
  1. LAMOTRIGINE [Suspect]
     Indication: EPILEPSY
     Dosage: 200 MG BID PO
     Route: 048
     Dates: start: 20091016, end: 20091116

REACTIONS (4)
  - DIZZINESS [None]
  - LETHARGY [None]
  - PRODUCT SUBSTITUTION ISSUE [None]
  - VOMITING [None]
